FAERS Safety Report 10037129 (Version 1)
Quarter: 2014Q1

REPORT INFORMATION
  Report Type: Spontaneous
  Country: US (occurrence: None)
  Receive Date: 20140325
  Receipt Date: 20140325
  Transmission Date: 20141002
  Serious: Yes (Other)
  Sender: FDA-Public Use
  Company Number: None

PATIENT
  Age: 7 Year
  Sex: Female
  Weight: 19.96 kg

DRUGS (2)
  1. SINGULAR [Suspect]
     Indication: ASTHMA
     Route: 048
     Dates: start: 20131122, end: 20140321
  2. SINGULAR [Suspect]
     Indication: HYPERSENSITIVITY
     Route: 048
     Dates: start: 20131122, end: 20140321

REACTIONS (7)
  - Mood altered [None]
  - Emotional disorder [None]
  - Crying [None]
  - Depressed mood [None]
  - Aggression [None]
  - Anger [None]
  - Abnormal behaviour [None]
